FAERS Safety Report 9419746 (Version 2)
Quarter: 2013Q3

REPORT INFORMATION
  Report Type: Spontaneous
  Country: DE (occurrence: DE)
  Receive Date: 20130725
  Receipt Date: 20130814
  Transmission Date: 20140515
  Serious: Yes (Hospitalization, Congenital Anomaly)
  Sender: FDA-Public Use
  Company Number: DE-PFIZER INC-2013213785

PATIENT
  Age: 1 Day
  Sex: Male
  Weight: 2.8 kg

DRUGS (11)
  1. RAMIPRIL [Suspect]
     Indication: HYPERTENSION
     Dosage: UNK
     Route: 064
  2. RAMIPRIL [Suspect]
     Indication: MATERNAL EXPOSURE TIMING UNSPECIFIED
  3. PRAVASTATIN SODIUM [Suspect]
     Indication: HYPERCHOLESTEROLAEMIA
     Dosage: UNK
     Route: 064
  4. PRAVASTATIN SODIUM [Suspect]
     Indication: MATERNAL EXPOSURE TIMING UNSPECIFIED
  5. CLOPIDOGREL [Suspect]
     Indication: ISCHAEMIC HEART DISEASE PROPHYLAXIS
     Dosage: 75 MG, DAILY
     Route: 064
  6. CLOPIDOGREL [Suspect]
     Indication: MATERNAL EXPOSURE TIMING UNSPECIFIED
  7. METOPROLOL TARTRATE [Suspect]
     Indication: HYPERTENSION
     Dosage: UNK
     Route: 064
  8. METOPROLOL TARTRATE [Suspect]
     Indication: MATERNAL EXPOSURE TIMING UNSPECIFIED
  9. ASA [Suspect]
     Indication: ISCHAEMIC HEART DISEASE PROPHYLAXIS
     Dosage: 100 MG, DAILY
     Route: 064
  10. ASA [Suspect]
     Indication: MATERNAL EXPOSURE TIMING UNSPECIFIED
  11. NEPRESOL [Concomitant]
     Indication: HYPERTENSION
     Dosage: UNK
     Route: 064

REACTIONS (11)
  - Maternal exposure during pregnancy [Unknown]
  - Congenital aortic valve stenosis [Recovered/Resolved with Sequelae]
  - Aorta hypoplasia [Recovered/Resolved with Sequelae]
  - Coarctation of the aorta [Recovered/Resolved with Sequelae]
  - Mitral valve hypoplasia [Recovered/Resolved with Sequelae]
  - Atrial septal defect [Recovered/Resolved with Sequelae]
  - Ventricular septal defect [Unknown]
  - Congenital heart valve disorder [Recovered/Resolved with Sequelae]
  - Congenital aortic stenosis [Unknown]
  - Congenital heart valve disorder [Unknown]
  - Congenital aortic stenosis [Unknown]
